FAERS Safety Report 9168863 (Version 1)
Quarter: 2013Q1

REPORT INFORMATION
  Report Type: Spontaneous
  Country: HK (occurrence: HK)
  Receive Date: 20130318
  Receipt Date: 20130318
  Transmission Date: 20140127
  Serious: Yes (Other)
  Sender: FDA-Public Use
  Company Number: HK-PFIZER INC-2013085264

PATIENT
  Sex: 0

DRUGS (1)
  1. XALKORI [Suspect]

REACTIONS (1)
  - Leukoencephalopathy [Unknown]
